FAERS Safety Report 11148141 (Version 1)
Quarter: 2015Q2

REPORT INFORMATION
  Report Type: Spontaneous
  Country: US (occurrence: None)
  Receive Date: 20150528
  Receipt Date: 20150528
  Transmission Date: 20150821
  Serious: Yes (Life-Threatening, Hospitalization, Other)
  Sender: FDA-Public Use
  Company Number: None

PATIENT
  Age: 62 Year
  Sex: Female
  Weight: 149 kg

DRUGS (6)
  1. BRENTUXIMAB VEDOTIN [Suspect]
     Active Substance: BRENTUXIMAB VEDOTIN
     Indication: NON-HODGKIN^S LYMPHOMA RECURRENT
     Dosage: 180MG  EVERY 2 WEEKS
     Route: 042
     Dates: start: 20140826, end: 20140916
  2. BRENTUXIMAB VEDOTIN [Suspect]
     Active Substance: BRENTUXIMAB VEDOTIN
     Dosage: 180MG  EVERY 2 WEEKS
     Route: 042
     Dates: start: 20140826, end: 20140916
  3. CLONAZEPAM. [Concomitant]
     Active Substance: CLONAZEPAM
  4. OXYCODONE [Concomitant]
     Active Substance: OXYCODONE
  5. PRAVASTATIN [Concomitant]
     Active Substance: PRAVASTATIN\PRAVASTATIN SODIUM
  6. COLACE [Concomitant]
     Active Substance: DOCUSATE SODIUM

REACTIONS (10)
  - Respiratory distress [None]
  - Multi-organ failure [None]
  - Acute kidney injury [None]
  - Anuria [None]
  - Type 2 diabetes mellitus [None]
  - Bacteraemia [None]
  - Nausea [None]
  - Vomiting [None]
  - Diarrhoea [None]
  - Urinary lipids present [None]

NARRATIVE: CASE EVENT DATE: 20140927
